FAERS Safety Report 16428732 (Version 1)
Quarter: 2019Q2

REPORT INFORMATION
  Report Type: Spontaneous
  Country: US (occurrence: US)
  Receive Date: 20190506
  Receipt Date: 20190506
  Transmission Date: 20190711
  Serious: Yes (Hospitalization)
  Sender: FDA-Public Use
  Company Number: None

PATIENT
  Age: 79 Year
  Sex: Male
  Weight: 100.79 kg

DRUGS (1)
  1. WARFARIN [Suspect]
     Active Substance: WARFARIN
     Indication: DEEP VEIN THROMBOSIS
     Dates: start: 20041012, end: 20190411

REACTIONS (3)
  - Anticoagulation drug level below therapeutic [None]
  - Cerebral haemorrhage [None]
  - Cerebral amyloid angiopathy [None]

NARRATIVE: CASE EVENT DATE: 20190411
